FAERS Safety Report 5182982-6 (Version None)
Quarter: 2006Q4

REPORT INFORMATION
  Report Type: 
  Country: None (occurrence: None)
  Receive Date: 20061212
  Receipt Date: 20061201
  Transmission Date: 20070319
  Serious: Yes (Other)
  Sender: FDA-Public Use
  Company Number: 233378

PATIENT
  Age: 12 Year
  Sex: Female
  Weight: 70 kg

DRUGS (3)
  1. NUTROPIN AQ ( SOMATROPIN ) POWDER FOR INJECTION, 10MG [Suspect]
     Indication: NEOPLASM MALIGNANT
     Dosage: 1.6 MG, 7/WEEK, SUBCUTANEOUS
     Route: 058
     Dates: start: 20021223
  2. PREMARIN [Concomitant]
  3. UNITHROID (LEVOTHYROXINE SODIUM) [Concomitant]

REACTIONS (1)
  - BRAIN NEOPLASM [None]
